FAERS Safety Report 5416801-7 (Version None)
Quarter: 2007Q3

REPORT INFORMATION
  Report Type: 
  Country: None (occurrence: None)
  Receive Date: 20070816
  Receipt Date: 20070810
  Transmission Date: 20080115
  Serious: Yes (Other)
  Sender: FDA-Public Use
  Company Number: PHEH2007US04260

PATIENT
  Age: 49 Year
  Sex: Male

DRUGS (11)
  1. DIOVAN [Suspect]
     Indication: HYPERTENSION
     Dosage: 40 MG, QD
     Route: 048
     Dates: start: 20051201, end: 20061201
  2. DIOVAN [Suspect]
     Dosage: 80 MG, QD
     Route: 048
     Dates: start: 20061201, end: 20070401
  3. EPINEPHRINE [Concomitant]
     Dosage: 0.3MG/0/3ML IM PEN INJECTOR, PRN
  4. TOPROL-XL [Concomitant]
     Dosage: 100 MG, BID
  5. NORVASC [Concomitant]
     Dosage: 10 MG, QD
  6. LIPITOR [Concomitant]
     Dosage: 40 MG, QD
  7. BACLOFEN [Concomitant]
     Dosage: 10MG, 8 TABS / DAY
  8. ZOMIG [Concomitant]
     Dosage: 5 MG, BID
  9. MOBIC [Concomitant]
     Dosage: 7.5 MG, BID
  10. PREVACID [Concomitant]
     Dosage: 30 MG, QD
  11. CLARITIN-D [Concomitant]
     Dosage: ^10MG-240MG^, QD

REACTIONS (12)
  - ANGIOEDEMA [None]
  - BALANCE DISORDER [None]
  - BLOOD PRESSURE INADEQUATELY CONTROLLED [None]
  - CONFUSIONAL STATE [None]
  - FURUNCLE [None]
  - HYPERSENSITIVITY [None]
  - LIP SWELLING [None]
  - MYALGIA [None]
  - NEURALGIA [None]
  - PROSTATIC SPECIFIC ANTIGEN INCREASED [None]
  - RIB FRACTURE [None]
  - SWELLING FACE [None]
